FAERS Safety Report 23247348 (Version 1)
Quarter: 2023Q4

REPORT INFORMATION
  Report Type: Spontaneous
  Country: CA (occurrence: None)
  Receive Date: 20231130
  Receipt Date: 20231130
  Transmission Date: 20240110
  Serious: Yes (Other)
  Sender: FDA-Public Use
  Company Number: 2023A101041

PATIENT
  Age: 67 Year
  Sex: Female

DRUGS (6)
  1. ACLIDINIUM BROMIDE [Suspect]
     Active Substance: ACLIDINIUM BROMIDE
     Indication: Product used for unknown indication
     Dosage: 322 MICROGRAM INHALATION (1 DOSAGE FORM, 2 EVERY 1 DAY)
     Route: 055
  2. SYMBICORT [Suspect]
     Active Substance: BUDESONIDE\FORMOTEROL FUMARATE DIHYDRATE
     Indication: Product used for unknown indication
     Route: 055
  3. MEPOLIZUMAB [Suspect]
     Active Substance: MEPOLIZUMAB
     Indication: Asthma
  4. ASPIRIN [Suspect]
     Active Substance: ASPIRIN
     Indication: Product used for unknown indication
  5. ALBUTEROL SULFATE [Suspect]
     Active Substance: ALBUTEROL SULFATE
     Indication: Asthma
  6. B12 INJECTION [Concomitant]

REACTIONS (14)
  - Blood pressure increased [Unknown]
  - Blood urine present [Unknown]
  - Decreased appetite [Unknown]
  - Dizziness [Unknown]
  - Drug hypersensitivity [Unknown]
  - Dysuria [Unknown]
  - Full blood count abnormal [Unknown]
  - Haematochezia [Unknown]
  - Neoplasm malignant [Unknown]
  - Obstructive airways disorder [Unknown]
  - Hypertension [Unknown]
  - Asthma [Unknown]
  - Nasopharyngitis [Unknown]
  - Incorrect product administration duration [Unknown]
